FAERS Safety Report 9027931 (Version 1)
Quarter: 2013Q1

REPORT INFORMATION
  Report Type: Report from Study
  Country: TR (occurrence: TR)
  Receive Date: 20130123
  Receipt Date: 20130123
  Transmission Date: 20140127
  Serious: Yes (Hospitalization)
  Sender: FDA-Public Use
  Company Number: TR-ABBOTT-13P-161-1037663-00

PATIENT
  Age: 53 Year
  Sex: Female
  Weight: 63 kg

DRUGS (6)
  1. ZEMPLAR [Suspect]
     Indication: HYPERPARATHYROIDISM
     Route: 042
     Dates: start: 20110701
  2. EPREX [Concomitant]
     Indication: RENAL FAILURE CHRONIC
     Route: 058
     Dates: start: 20121207
  3. VENOFER [Concomitant]
     Indication: RENAL FAILURE CHRONIC
     Dosage: 3X1/WEEK
     Route: 042
     Dates: start: 20121101
  4. RENAGEL [Concomitant]
     Indication: RENAL FAILURE CHRONIC
     Dosage: 3X2
     Route: 048
     Dates: start: 20060301
  5. MIMPARA [Concomitant]
     Indication: RENAL FAILURE CHRONIC
     Dosage: 1X1
     Route: 048
     Dates: start: 20120706
  6. REDOXAN [Concomitant]
     Indication: RENAL FAILURE CHRONIC
     Route: 042
     Dates: start: 20100401

REACTIONS (1)
  - Dysfunctional uterine bleeding [Not Recovered/Not Resolved]
